FAERS Safety Report 17220491 (Version 2)
Quarter: 2020Q1

REPORT INFORMATION
  Report Type: Report from Study
  Country: US (occurrence: US)
  Receive Date: 20191231
  Receipt Date: 20200203
  Transmission Date: 20200409
  Serious: Yes (Hospitalization, Other)
  Sender: FDA-Public Use
  Company Number: US-GILEAD-2019-0444968

PATIENT
  Age: 55 Year
  Sex: Female

DRUGS (14)
  1. PANCREAZE [AMYLASE;LIPASE;PROTEASE] [Concomitant]
  2. SODIUM CHLORIDE. [Concomitant]
     Active Substance: SODIUM CHLORIDE
  3. URSODIOL. [Concomitant]
     Active Substance: URSODIOL
  4. LORATADINE. [Concomitant]
     Active Substance: LORATADINE
  5. MUCINEX [Concomitant]
     Active Substance: GUAIFENESIN
  6. AZTREONAM LYSINE [Suspect]
     Active Substance: AZTREONAM LYSINE
     Indication: CYSTIC FIBROSIS LUNG
  7. KALYDECO [Concomitant]
     Active Substance: IVACAFTOR
  8. VITAMIN D3 [Concomitant]
     Active Substance: CHOLECALCIFEROL
  9. AZTREONAM LYSINE [Suspect]
     Active Substance: AZTREONAM LYSINE
     Indication: CYSTIC FIBROSIS
     Dosage: 75 MG, TID
     Route: 055
     Dates: start: 20131227
  10. PARI [Concomitant]
  11. TOPAMAX [Concomitant]
     Active Substance: TOPIRAMATE
  12. TRAMADOL. [Concomitant]
     Active Substance: TRAMADOL
  13. CALCIUM CITRATE + D3 [Concomitant]
  14. ZOLOFT [Concomitant]
     Active Substance: SERTRALINE HYDROCHLORIDE

REACTIONS (9)
  - Abdominal pain [Unknown]
  - Procedural complication [Unknown]
  - Pneumonia [Not Recovered/Not Resolved]
  - Thrombosis [Not Recovered/Not Resolved]
  - Nephrolithiasis [Unknown]
  - Peripheral swelling [Not Recovered/Not Resolved]
  - Ulcer [Unknown]
  - Thrombosis [Unknown]
  - Hypoaesthesia [Unknown]

NARRATIVE: CASE EVENT DATE: 20191208
